FAERS Safety Report 5400253-7 (Version None)
Quarter: 2007Q3

REPORT INFORMATION
  Report Type: 
  Country: None (occurrence: None)
  Receive Date: 20070727
  Receipt Date: 20070727
  Transmission Date: 20080115
  Serious: Yes (Other)
  Sender: FDA-Public Use
  Company Number: None

PATIENT
  Age: 42 Year
  Sex: Female
  Weight: 58.514 kg

DRUGS (2)
  1. LEXAPRO [Suspect]
     Indication: ANXIETY
     Dosage: 10MG ONCE DAILY PO
     Route: 048
     Dates: start: 20040601, end: 20070709
  2. LEXAPRO [Suspect]
     Indication: PANIC ATTACK
     Dosage: 10MG ONCE DAILY PO
     Route: 048
     Dates: start: 20040601, end: 20070709

REACTIONS (6)
  - AKATHISIA [None]
  - HYPERTENSION [None]
  - INSULIN RESISTANCE [None]
  - METABOLIC SYNDROME [None]
  - WEIGHT DECREASED [None]
  - WEIGHT LOSS POOR [None]
